FAERS Safety Report 5495991-4 (Version None)
Quarter: 2007Q4

REPORT INFORMATION
  Report Type: 
  Country: None (occurrence: None)
  Receive Date: 20071025
  Receipt Date: 20070108
  Transmission Date: 20080405
  Serious: No
  Sender: FDA-Public Use
  Company Number: A0634718A

PATIENT
  Age: 80 Year
  Sex: Female

DRUGS (16)
  1. ADVAIR DISKUS 100/50 [Suspect]
     Route: 055
     Dates: start: 20020101
  2. ATENOLOL [Concomitant]
  3. BENICAR [Concomitant]
  4. NORVASC [Concomitant]
  5. PLAVIX [Concomitant]
  6. RANITIDINE HCL [Concomitant]
  7. UNKNOWN MEDICATION [Concomitant]
  8. ASPIRIN [Concomitant]
  9. COQ-10 [Concomitant]
  10. LEVAQUIN [Concomitant]
  11. CIPRO [Concomitant]
  12. ZITHROMAX [Concomitant]
  13. ALBUTEROL [Concomitant]
  14. ATROVENT [Concomitant]
  15. NASACORT [Concomitant]
  16. ATROVENT NASAL [Concomitant]

REACTIONS (5)
  - ACCIDENTAL OVERDOSE [None]
  - DYSURIA [None]
  - FATIGUE [None]
  - INTESTINAL FUNCTIONAL DISORDER [None]
  - MUSCULAR WEAKNESS [None]
